FAERS Safety Report 11080745 (Version 1)
Quarter: 2015Q2

REPORT INFORMATION
  Report Type: Spontaneous
  Country: FR (occurrence: FR)
  Receive Date: 20150501
  Receipt Date: 20150501
  Transmission Date: 20150821
  Serious: Yes (Other)
  Sender: FDA-Public Use
  Company Number: FR-009507513-1504FRA021924

PATIENT
  Sex: Female

DRUGS (11)
  1. SIFROL [Suspect]
     Active Substance: PRAMIPEXOLE
     Dosage: 1 DF, QD
     Route: 048
     Dates: start: 201003, end: 201206
  2. MODOPAR [Suspect]
     Active Substance: BENSERAZIDE HYDROCHLORIDE\LEVODOPA
     Indication: PARKINSONISM
     Dosage: 1.5 DF, QD
     Route: 048
     Dates: start: 201003, end: 20130620
  3. MODOPAR [Suspect]
     Active Substance: BENSERAZIDE HYDROCHLORIDE\LEVODOPA
     Indication: PARKINSONISM
     Dosage: 1 MG, TID
     Route: 048
     Dates: start: 200301
  4. DEROXAT [Concomitant]
     Active Substance: PAROXETINE HYDROCHLORIDE
     Route: 048
  5. SINEMET [Suspect]
     Active Substance: CARBIDOPA\LEVODOPA
     Indication: PARKINSONISM
     Dosage: 450 MG, QD
     Route: 048
     Dates: start: 200207, end: 200301
  6. PARLODEL [Suspect]
     Active Substance: BROMOCRIPTINE MESYLATE
     Indication: PARKINSONISM
     Dosage: 60 MG, QD
     Route: 048
     Dates: start: 200010, end: 200610
  7. MODOPAR [Suspect]
     Active Substance: BENSERAZIDE HYDROCHLORIDE\LEVODOPA
     Dosage: UNK
  8. MODOPAR [Suspect]
     Active Substance: BENSERAZIDE HYDROCHLORIDE\LEVODOPA
     Indication: PARKINSONISM
     Dosage: 1 DF, BID
     Route: 048
     Dates: start: 200301
  9. SIFROL [Suspect]
     Active Substance: PRAMIPEXOLE
     Dosage: 2.5 MG, QD
     Route: 048
     Dates: start: 200610, end: 201210
  10. REQUIP LP [Suspect]
     Active Substance: ROPINIROLE HYDROCHLORIDE
     Indication: PARKINSONISM
     Dosage: 1 DF, QD
     Route: 048
     Dates: start: 201206
  11. AZILECT [Suspect]
     Active Substance: RASAGILINE MESYLATE
     Dosage: 1 MG, QD
     Route: 048
     Dates: start: 201105

REACTIONS (4)
  - Pathological gambling [Not Recovered/Not Resolved]
  - Hypersexuality [Not Recovered/Not Resolved]
  - Eating disorder [Not Recovered/Not Resolved]
  - Compulsive shopping [Not Recovered/Not Resolved]

NARRATIVE: CASE EVENT DATE: 2001
